FAERS Safety Report 12676225 (Version 1)
Quarter: 2016Q3

REPORT INFORMATION
  Report Type: Spontaneous
  Country: US (occurrence: US)
  Receive Date: 20160823
  Receipt Date: 20160823
  Transmission Date: 20161109
  Serious: No
  Sender: FDA-Public Use
  Company Number: US-PFIZER INC-2016330026

PATIENT
  Age: 60 Year
  Sex: Female

DRUGS (5)
  1. SKELAXIN [Suspect]
     Active Substance: METAXALONE
     Indication: MYALGIA
     Dosage: 800 MG, AS NEEDED (TID)
     Route: 048
     Dates: start: 20160229, end: 20160810
  2. SKELAXIN [Suspect]
     Active Substance: METAXALONE
     Indication: BACK PAIN
  3. PRILOSEC [Concomitant]
     Active Substance: OMEPRAZOLE MAGNESIUM
     Dosage: 10 MG, AS NEEDED (ONCE A DAY )
     Route: 048
  4. SKELAXIN [Suspect]
     Active Substance: METAXALONE
     Indication: MUSCLE SPASMS
     Dosage: 800 MG, 3X/DAY
     Route: 048
  5. DICLOFENAC POTASSIUM. [Concomitant]
     Active Substance: DICLOFENAC POTASSIUM
     Indication: BACK PAIN
     Dosage: 50 MG, AS NEEDED (TWICE DAILY)
     Route: 048

REACTIONS (1)
  - Drug hypersensitivity [Unknown]
